FAERS Safety Report 19607841 (Version 1)
Quarter: 2021Q3

REPORT INFORMATION
  Report Type: Spontaneous
  Country: JP (occurrence: JP)
  Receive Date: 20210726
  Receipt Date: 20210726
  Transmission Date: 20211014
  Serious: Yes (Hospitalization, Other)
  Sender: FDA-Public Use
  Company Number: JP-JIANGSU HENGRUI MEDICINE CO., LTD.-2114256

PATIENT
  Age: 29 Year
  Sex: Female
  Weight: 48 kg

DRUGS (5)
  1. GANIRELIX [Suspect]
     Active Substance: GANIRELIX
  2. CABERGOLINE. [Concomitant]
     Active Substance: CABERGOLINE
     Route: 048
  3. FOLLICLE STIMULATING HORMONE, RECOMBINANT [Suspect]
     Active Substance: FOLLITROPIN
     Route: 041
  4. LETROZOLE TABLETS USP, 2.5?MG [Suspect]
     Active Substance: LETROZOLE
     Indication: PROPHYLAXIS
  5. BUSERELIN [Suspect]
     Active Substance: BUSERELIN

REACTIONS (3)
  - Product use in unapproved indication [Unknown]
  - Ovarian rupture [Recovering/Resolving]
  - Haemoperitoneum [Recovering/Resolving]
